FAERS Safety Report 4422649-2 (Version None)
Quarter: 2004Q3

REPORT INFORMATION
  Report Type: 
  Country: None (occurrence: None)
  Receive Date: 20040713
  Receipt Date: 20030423
  Transmission Date: 20050211
  Serious: No
  Sender: FDA-Public Use
  Company Number: PHEH2003US03401

PATIENT
  Age: 8 Month
  Sex: Female

DRUGS (1)
  1. ELIDEL [Suspect]
     Indication: ECZEMA
     Dosage: ONCE/ SINGLE, TOPICAL
     Route: 061
     Dates: start: 20030422, end: 20030422

REACTIONS (1)
  - APPLICATION SITE PUSTULES [None]
